FAERS Safety Report 12810020 (Version 1)
Quarter: 2016Q4

REPORT INFORMATION
  Report Type: Spontaneous
  Country: US (occurrence: US)
  Receive Date: 20161004
  Receipt Date: 20161004
  Transmission Date: 20170207
  Serious: No
  Sender: FDA-Public Use
  Company Number: None

PATIENT
  Age: 71 Year
  Sex: Female

DRUGS (9)
  1. FUROSEMIDE. [Concomitant]
     Active Substance: FUROSEMIDE
  2. QUETIAPINE. [Concomitant]
     Active Substance: QUETIAPINE
  3. AMLODIPINE [Concomitant]
     Active Substance: AMLODIPINE BESYLATE
  4. CAPECITABINE 500MG TAB [Suspect]
     Active Substance: CAPECITABINE
     Indication: BREAST CANCER
     Dosage: 1000MG BID FOR 7 DAYS PO
     Route: 048
     Dates: start: 20160909
  5. CLONAZEPAM. [Concomitant]
     Active Substance: CLONAZEPAM
  6. LIDOCAINE. [Concomitant]
     Active Substance: LIDOCAINE
  7. MELOXICAM. [Concomitant]
     Active Substance: MELOXICAM
  8. GABAPENTIN. [Concomitant]
     Active Substance: GABAPENTIN
  9. SIMVASTATIN. [Concomitant]
     Active Substance: SIMVASTATIN

REACTIONS (3)
  - Fatigue [None]
  - Depression [None]
  - Nausea [None]

NARRATIVE: CASE EVENT DATE: 201609
